FAERS Safety Report 5479781-4 (Version None)
Quarter: 2007Q4

REPORT INFORMATION
  Report Type: 
  Country: None (occurrence: None)
  Receive Date: 20071008
  Receipt Date: 20071001
  Transmission Date: 20080405
  Serious: Yes (Hospitalization)
  Sender: FDA-Public Use
  Company Number: FR-ASTRAZENECA-2007CG01386

PATIENT
  Age: 85 Year
  Sex: Female

DRUGS (1)
  1. HYTACAND [Suspect]
     Dosage: 16 + 12.5 MG DAILY
     Route: 048
     Dates: start: 20070901, end: 20070905

REACTIONS (3)
  - CIRCULATORY COLLAPSE [None]
  - PRURITUS [None]
  - RASH [None]
